FAERS Safety Report 16723529 (Version 4)
Quarter: 2020Q1

REPORT INFORMATION
  Report Type: Spontaneous
  Country: GB (occurrence: GB)
  Receive Date: 20190821
  Receipt Date: 20200213
  Transmission Date: 20200409
  Serious: Yes (Other)
  Sender: FDA-Public Use
  Company Number: GB-AMGEN-GBRSP2019133546

PATIENT
  Age: 27 Year
  Sex: Female

DRUGS (1)
  1. ENBREL [Suspect]
     Active Substance: ETANERCEPT
     Indication: RHEUMATOID ARTHRITIS
     Dosage: 50 MILLIGRAM, QWK
     Route: 065

REACTIONS (9)
  - Nausea [Unknown]
  - Rheumatoid arthritis [Unknown]
  - Suicidal ideation [Unknown]
  - Impaired quality of life [Unknown]
  - Arthralgia [Unknown]
  - Cough [Unknown]
  - Nasopharyngitis [Unknown]
  - Therapeutic response decreased [Unknown]
  - Diarrhoea [Unknown]
